FAERS Safety Report 11263638 (Version 1)
Quarter: 2015Q3

REPORT INFORMATION
  Report Type: Spontaneous
  Country: US (occurrence: None)
  Receive Date: 20150710
  Receipt Date: 20150710
  Transmission Date: 20151125
  Serious: Yes (Death, Hospitalization)
  Sender: FDA-Public Use
  Company Number: None

PATIENT
  Age: 1 Month
  Sex: Male
  Weight: 2.87 kg

DRUGS (2)
  1. CARBOPLATIN. [Suspect]
     Active Substance: CARBOPLATIN
     Dates: end: 20150620
  2. ETOPOSIDE (VP-16) [Suspect]
     Active Substance: ETOPOSIDE
     Dates: end: 20150622

REACTIONS (9)
  - Blister [None]
  - Skin exfoliation [None]
  - Multi-organ failure [None]
  - Neonatal respiratory failure [None]
  - Acute kidney injury [None]
  - Condition aggravated [None]
  - Dialysis [None]
  - Generalised oedema [None]
  - Malaise [None]

NARRATIVE: CASE EVENT DATE: 20150706
